FAERS Safety Report 16099433 (Version 1)
Quarter: 2019Q1

REPORT INFORMATION
  Report Type: Spontaneous
  Country: US (occurrence: US)
  Receive Date: 20190321
  Receipt Date: 20190321
  Transmission Date: 20190418
  Serious: Yes (Other)
  Sender: FDA-Public Use
  Company Number: PHHY2019US062183

PATIENT
  Age: 37 Year

DRUGS (2)
  1. PEGASPARGASE [Suspect]
     Active Substance: PEGASPARGASE
     Indication: T-CELL TYPE ACUTE LEUKAEMIA
     Dosage: 1 COURSE
     Route: 065
  2. PREDNISONE. [Suspect]
     Active Substance: PREDNISONE
     Indication: T-CELL TYPE ACUTE LEUKAEMIA
     Dosage: 1 COURSE
     Route: 065

REACTIONS (1)
  - Embolism venous [Unknown]
